FAERS Safety Report 6061529-6 (Version None)
Quarter: 2009Q1

REPORT INFORMATION
  Report Type: 
  Country: None (occurrence: None)
  Receive Date: 20090202
  Receipt Date: 20090119
  Transmission Date: 20090719
  Serious: Yes (Hospitalization)
  Sender: FDA-Public Use
  Company Number: FR-ROCHE-608584

PATIENT
  Sex: Male

DRUGS (9)
  1. ROCEPHIN [Suspect]
     Route: 048
     Dates: start: 20080506
  2. APRANAX [Suspect]
     Route: 048
     Dates: start: 20080506
  3. BACTRIM [Suspect]
     Indication: DRUG USE FOR UNKNOWN INDICATION
     Route: 048
     Dates: start: 20080521
  4. SUSTIVA [Suspect]
     Indication: DRUG USE FOR UNKNOWN INDICATION
     Route: 048
     Dates: start: 20080521
  5. EPIVIR [Suspect]
     Indication: DRUG USE FOR UNKNOWN INDICATION
     Route: 048
     Dates: start: 20080521
  6. TRUVADA [Suspect]
     Indication: DRUG USE FOR UNKNOWN INDICATION
     Dosage: DOSE REPORTED AS 200 MG/245 MG
     Route: 048
     Dates: start: 20080521, end: 20080530
  7. MYAMBUTOL [Suspect]
     Indication: DRUG USE FOR UNKNOWN INDICATION
     Route: 048
     Dates: start: 20080523
  8. KALETRA [Suspect]
     Indication: DRUG USE FOR UNKNOWN INDICATION
     Route: 048
     Dates: start: 20080521, end: 20080530
  9. RIFATER [Suspect]
     Indication: DRUG USE FOR UNKNOWN INDICATION
     Route: 048
     Dates: start: 20080523

REACTIONS (3)
  - HYPERTENSION [None]
  - PROTEINURIA [None]
  - RENAL FAILURE ACUTE [None]
